FAERS Safety Report 12207408 (Version 4)
Quarter: 2016Q2

REPORT INFORMATION
  Report Type: Spontaneous
  Country: US (occurrence: US)
  Receive Date: 20160324
  Receipt Date: 20160603
  Transmission Date: 20160815
  Serious: Yes (Other)
  Sender: FDA-Public Use
  Company Number: US-JNJFOC-20160318926

PATIENT
  Age: 58 Year
  Sex: Male
  Weight: 90.72 kg

DRUGS (1)
  1. XARELTO [Suspect]
     Active Substance: RIVAROXABAN
     Indication: DEEP VEIN THROMBOSIS
     Route: 048
     Dates: start: 20140725, end: 20160107

REACTIONS (4)
  - Gastrointestinal haemorrhage [Unknown]
  - Blood disorder [Unknown]
  - Gingival bleeding [Unknown]
  - Pulmonary embolism [Unknown]

NARRATIVE: CASE EVENT DATE: 20160107
